FAERS Safety Report 10375659 (Version 1)
Quarter: 2014Q3

REPORT INFORMATION
  Report Type: Spontaneous
  Country: US (occurrence: US)
  Receive Date: 20140811
  Receipt Date: 20140811
  Transmission Date: 20150326
  Serious: No
  Sender: FDA-Public Use
  Company Number: US-ASTRAZENECA-2014SE56246

PATIENT
  Age: 87 Year
  Sex: Female
  Weight: 58.5 kg

DRUGS (6)
  1. RHINOCORT AQUA [Suspect]
     Active Substance: BUDESONIDE
     Indication: VERTIGO
     Dosage: 2 SPRAYS PER NOSTRIL DAILY
     Route: 045
     Dates: start: 2014
  2. RHINOCORT AQUA [Suspect]
     Active Substance: BUDESONIDE
     Indication: VERTIGO
     Dosage: 2 SPRAYS PER NOSTRIL DAILY, GENERIC MADE BY APOTEX
     Route: 045
     Dates: start: 20140723
  3. LOTRIL [Concomitant]
     Active Substance: ENALAPRIL MALEATE
     Indication: BLOOD PRESSURE ABNORMAL
     Dosage: DAILY
     Route: 048
  4. LEVOTHYROXINE [Concomitant]
     Active Substance: LEVOTHYROXINE
     Indication: THYROID DISORDER
     Dosage: DAILY
     Route: 048
     Dates: start: 2010
  5. RHINOCORT AQUA [Suspect]
     Active Substance: BUDESONIDE
     Indication: UPPER-AIRWAY COUGH SYNDROME
     Dosage: 2 SPRAYS PER NOSTRIL DAILY, GENERIC MADE BY APOTEX
     Route: 045
     Dates: start: 20140723
  6. RHINOCORT AQUA [Suspect]
     Active Substance: BUDESONIDE
     Indication: UPPER-AIRWAY COUGH SYNDROME
     Dosage: 2 SPRAYS PER NOSTRIL DAILY
     Route: 045
     Dates: start: 2014

REACTIONS (7)
  - Headache [Unknown]
  - Sinus disorder [Unknown]
  - Vertigo [Not Recovered/Not Resolved]
  - Oropharyngeal pain [Unknown]
  - Ear discomfort [Unknown]
  - Ear pain [Unknown]
  - Intentional product misuse [Unknown]
